FAERS Safety Report 7390980-7 (Version None)
Quarter: 2011Q2

REPORT INFORMATION
  Report Type: 
  Country: None (occurrence: None)
  Receive Date: 20110404
  Receipt Date: 20110331
  Transmission Date: 20111010
  Serious: No
  Sender: FDA-Public Use
  Company Number: US-PFIZER INC-2011072378

PATIENT
  Sex: Male
  Weight: 79.37 kg

DRUGS (3)
  1. MULTIVITAMIN [Concomitant]
     Dosage: UNK
  2. LORATADINE AND PSEUDOEPHEDRINE SULFATE [Suspect]
     Indication: HYPERSENSITIVITY
     Dosage: 5/120 MG, 2X/DAY
     Route: 048
     Dates: start: 20110301
  3. FISH OIL [Concomitant]
     Dosage: UNK

REACTIONS (1)
  - DYSURIA [None]
